FAERS Safety Report 16530673 (Version 1)
Quarter: 2019Q3

REPORT INFORMATION
  Report Type: Spontaneous
  Country: NO (occurrence: NO)
  Receive Date: 20190704
  Receipt Date: 20190704
  Transmission Date: 20191004
  Serious: Yes (Death)
  Sender: FDA-Public Use
  Company Number: NO-TEVA-2019-NO-1072676

PATIENT
  Age: 78 Year
  Sex: Female

DRUGS (2)
  1. PREDNISOLON [Suspect]
     Active Substance: PREDNISOLONE
     Indication: RHEUMATIC DISORDER
     Dosage: 7,5 MG 3 DAYS A WEEK AND 5 MG 4 DAYS A WEEK
     Route: 048
     Dates: start: 2019, end: 2019
  2. VOLTAREN [Interacting]
     Active Substance: DICLOFENAC SODIUM
     Indication: BACK PAIN
     Dosage: DOSAGE UNKNOWN TO REPORTER.
     Route: 048
     Dates: start: 201901, end: 201901

REACTIONS (3)
  - Duodenal ulcer perforation [Fatal]
  - Drug interaction [Unknown]
  - Sepsis [Fatal]

NARRATIVE: CASE EVENT DATE: 20190123
